FAERS Safety Report 5484172-6 (Version None)
Quarter: 2007Q4

REPORT INFORMATION
  Report Type: 
  Country: None (occurrence: None)
  Receive Date: 20071012
  Receipt Date: 20070815
  Transmission Date: 20080405
  Serious: No
  Sender: FDA-Public Use
  Company Number: US-ASTRAZENECA-2007UW19707

PATIENT
  Sex: Male

DRUGS (3)
  1. SYMBICORT [Suspect]
     Indication: DYSPNOEA
     Dosage: 80/4.5 UG BID
     Route: 055
  2. AMOUR [Concomitant]
  3. ZANTAC [Concomitant]

REACTIONS (1)
  - PENIS DISORDER [None]
